FAERS Safety Report 9897136 (Version 2)
Quarter: 2014Q2

REPORT INFORMATION
  Report Type: Spontaneous
  Country: GB (occurrence: GB)
  Receive Date: 20140214
  Receipt Date: 20140424
  Transmission Date: 20141212
  Serious: Yes (Other)
  Sender: FDA-Public Use
  Company Number: GB-DRREDDYS-GER/UKI/14/0038025

PATIENT
  Age: 57 Year
  Sex: Female

DRUGS (2)
  1. LAMOTRIGINE [Suspect]
     Indication: CONVULSION PROPHYLAXIS
     Dates: start: 2009
  2. ANDREWS LIVER SALTS [Suspect]
     Indication: CONVULSION

REACTIONS (4)
  - Therapeutic response changed [Unknown]
  - Circulatory collapse [Unknown]
  - Hyperaemia [Unknown]
  - Convulsion [Unknown]
